FAERS Safety Report 5266724-1 (Version None)
Quarter: 2007Q1

REPORT INFORMATION
  Report Type: 
  Country: None (occurrence: None)
  Receive Date: 20070312
  Receipt Date: 20070223
  Transmission Date: 20070707
  Serious: Yes (Other)
  Sender: FDA-Public Use
  Company Number: 230005M07DEU

PATIENT
  Age: 31 Year
  Sex: Female
  Weight: 68 kg

DRUGS (4)
  1. REBIF [Suspect]
     Indication: MULTIPLE SCLEROSIS
     Dosage: 44 MCG, 3 IN 1 WEEKS, SUBCUTANEOUS
     Route: 058
     Dates: start: 20060421, end: 20070215
  2. REBIF [Suspect]
     Indication: RELAPSING-REMITTING MULTIPLE SCLEROSIS
     Dosage: 44 MCG, 3 IN 1 WEEKS, SUBCUTANEOUS
     Route: 058
     Dates: start: 20060421, end: 20070215
  3. ARCOXIA [Concomitant]
  4. PAROXETINE HCL [Concomitant]

REACTIONS (6)
  - BREAST DISCHARGE [None]
  - FATIGUE [None]
  - FIBROCYSTIC BREAST DISEASE [None]
  - HYPOTHYROIDISM [None]
  - INFLUENZA LIKE ILLNESS [None]
  - MUSCLE SPASMS [None]
